FAERS Safety Report 4801825-0 (Version None)
Quarter: 2005Q4

REPORT INFORMATION
  Report Type: 
  Country: None (occurrence: None)
  Receive Date: 20051014
  Receipt Date: 20051014
  Transmission Date: 20060501
  Serious: Yes (Hospitalization, Other)
  Sender: FDA-Public Use
  Company Number: None

PATIENT
  Sex: Female
  Weight: 73 kg

DRUGS (5)
  1. GLEEVEC [Suspect]
     Indication: GASTROINTESTINAL STROMAL TUMOUR
     Dosage: SEE IMAGE
     Route: 048
     Dates: end: 20051013
  2. GLEEVEC [Suspect]
     Indication: GASTROINTESTINAL STROMAL TUMOUR
     Dosage: SEE IMAGE
     Route: 048
     Dates: start: 20050812
  3. BUTALBITAL [Concomitant]
  4. COMPAZINE [Concomitant]
  5. FERROUS SULFATE TAB [Concomitant]

REACTIONS (3)
  - ABDOMINAL PAIN UPPER [None]
  - LIVER ABSCESS [None]
  - PURULENCE [None]
